FAERS Safety Report 8045492-4 (Version None)
Quarter: 2012Q1

REPORT INFORMATION
  Report Type: 
  Country: None (occurrence: None)
  Receive Date: 20120113
  Receipt Date: 20111230
  Transmission Date: 20120608
  Serious: Yes (Hospitalization, Congenital Anomaly, Other)
  Sender: FDA-Public Use
  Company Number: FR-PFIZER INC-2012002877

PATIENT
  Sex: Male

DRUGS (8)
  1. LEPTICUR [Suspect]
     Dosage: UNK
     Route: 064
  2. ANAFRANIL [Concomitant]
     Dosage: UNK
     Dates: end: 20101216
  3. TRIHEXYPHENIDYL HYDROCHLORIDE [Concomitant]
     Dosage: UNK
     Dates: end: 20101216
  4. NEURONTIN [Suspect]
     Dosage: 100 MG, 2X/DAY
     Route: 064
  5. ATARAX [Suspect]
     Dosage: 50 MG, DAILY
     Route: 064
  6. RISPERDAL [Suspect]
     Dosage: 4 MG, 1X/DAY
     Route: 064
  7. SULFARLEM [Suspect]
     Dosage: UNK
     Route: 064
  8. DEPAKOTE [Concomitant]
     Dosage: UNK
     Dates: end: 20101216

REACTIONS (9)
  - STRIDOR [None]
  - PIERRE ROBIN SYNDROME [None]
  - FEEDING DISORDER NEONATAL [None]
  - HIGH ARCHED PALATE [None]
  - GLOSSOPTOSIS [None]
  - WEIGHT GAIN POOR [None]
  - MATERNAL EXPOSURE TIMING UNSPECIFIED [None]
  - RETROGNATHIA [None]
  - HIP DYSPLASIA [None]
